FAERS Safety Report 6509840-6 (Version None)
Quarter: 2009Q4

REPORT INFORMATION
  Report Type: 
  Country: None (occurrence: None)
  Receive Date: 20091217
  Receipt Date: 20091207
  Transmission Date: 20100525
  Serious: Yes (Death)
  Sender: FDA-Public Use
  Company Number: 2009AL007752

PATIENT
  Age: 60 Year
  Sex: Male

DRUGS (2)
  1. VINORELBINE [Suspect]
     Indication: LUNG NEOPLASM MALIGNANT
     Dosage: 40 MG;IV
     Route: 042
     Dates: start: 20091102, end: 20091109
  2. SINPLATIN [Concomitant]

REACTIONS (11)
  - CARDIOVASCULAR INSUFFICIENCY [None]
  - CONDITION AGGRAVATED [None]
  - DIARRHOEA [None]
  - ELECTROLYTE IMBALANCE [None]
  - FEBRILE NEUTROPENIA [None]
  - HYPOVOLAEMIA [None]
  - NO THERAPEUTIC RESPONSE [None]
  - PANCYTOPENIA [None]
  - PULMONARY EMBOLISM [None]
  - RESPIRATORY FAILURE [None]
  - SUDDEN DEATH [None]
